FAERS Safety Report 12254680 (Version 1)
Quarter: 2016Q2

REPORT INFORMATION
  Report Type: Spontaneous
  Country: US (occurrence: US)
  Receive Date: 20160411
  Receipt Date: 20160411
  Transmission Date: 20160815
  Serious: No
  Sender: FDA-Public Use
  Company Number: US-SA-2015SA211012

PATIENT
  Age: 75 Year
  Sex: Female

DRUGS (2)
  1. ALLEGRA-D [Suspect]
     Active Substance: FEXOFENADINE\PSEUDOEPHEDRINE
     Indication: MULTIPLE ALLERGIES
     Dosage: TAKEN FROM: FROM YEAR
     Route: 048
  2. ALLEGRA-D [Suspect]
     Active Substance: FEXOFENADINE\PSEUDOEPHEDRINE
     Indication: ASTHMA
     Dosage: TAKEN FROM: FROM YEAR
     Route: 048

REACTIONS (3)
  - Medication residue present [Unknown]
  - Drug dose omission [Unknown]
  - Incorrect drug administration rate [Unknown]
